FAERS Safety Report 8159749-X (Version None)
Quarter: 2012Q1

REPORT INFORMATION
  Report Type: 
  Country: None (occurrence: None)
  Receive Date: 20120223
  Receipt Date: 20120221
  Transmission Date: 20120608
  Serious: Yes (Hospitalization)
  Sender: FDA-Public Use
  Company Number: US-JNJFOC-20120113614

PATIENT
  Age: 19 Year
  Sex: Female
  Weight: 45.36 kg

DRUGS (2)
  1. ACETAMINOPHEN [Suspect]
     Indication: PRODUCT USED FOR UNKNOWN INDICATION
     Route: 048
     Dates: start: 20120125, end: 20120125
  2. ACETAMINOPHEN [Suspect]
     Route: 048

REACTIONS (1)
  - OVERDOSE [None]
